FAERS Safety Report 17477959 (Version 2)
Quarter: 2025Q2

REPORT INFORMATION
  Report Type: Report from Study
  Country: ES (occurrence: ES)
  Receive Date: 20200229
  Receipt Date: 20250621
  Transmission Date: 20250717
  Serious: Yes (Other)
  Sender: AUROBINDO
  Company Number: ES-PERRIGO-20ES002047

PATIENT
  Age: 16 Year
  Sex: Male

DRUGS (2)
  1. IBUPROFEN [Suspect]
     Active Substance: IBUPROFEN
     Indication: Product used for unknown indication
     Dosage: 1200 MILLIGRAM, ONCE A DAY
     Route: 048
  2. IBUPROFEN [Suspect]
     Active Substance: IBUPROFEN
     Route: 048

REACTIONS (1)
  - Drug-induced liver injury [Recovered/Resolved]
